FAERS Safety Report 8557758-X (Version None)
Quarter: 2012Q3

REPORT INFORMATION
  Report Type: 
  Country: None (occurrence: None)
  Receive Date: 20120801
  Receipt Date: 20120725
  Transmission Date: 20120928
  Serious: Yes (Other)
  Sender: FDA-Public Use
  Company Number: JP-PFIZER INC-2012182078

PATIENT
  Sex: Female

DRUGS (2)
  1. XALATAN [Suspect]
     Indication: NORMAL TENSION GLAUCOMA
     Dosage: 1 UNK, UNK
     Route: 047
  2. TIMOLOL MALEATE [Suspect]
     Dosage: UNK
     Route: 047

REACTIONS (1)
  - CORNEAL DISORDER [None]
